FAERS Safety Report 16724411 (Version 1)
Quarter: 2019Q3

REPORT INFORMATION
  Report Type: Spontaneous
  Country: US (occurrence: US)
  Receive Date: 20190821
  Receipt Date: 20190821
  Transmission Date: 20191005
  Serious: No
  Sender: FDA-Public Use
  Company Number: US-MYLANLABS-2019M1075706

PATIENT
  Age: 72 Year
  Sex: Female
  Weight: 70 kg

DRUGS (11)
  1. ASPIRIN                            /00002701/ [Concomitant]
     Active Substance: ASPIRIN
     Dosage: 81 MILLIGRAM, QD
  2. VITAMIN D3 [Concomitant]
     Active Substance: CHOLECALCIFEROL
     Dosage: 5 INTERNATIONAL UNIT, QD
  3. VENTOLIN [Concomitant]
     Active Substance: ALBUTEROL SULFATE
     Dosage: UNK, PRN
  4. ALBUTEROL EXTENDED-RELEASE TABLETS, USP [Suspect]
     Active Substance: ALBUTEROL
     Indication: EMPHYSEMA
  5. DUONEB [Concomitant]
     Active Substance: ALBUTEROL SULFATE\IPRATROPIUM BROMIDE
     Dosage: UNK UNK, QID
  6. COUMADIN [Concomitant]
     Active Substance: WARFARIN SODIUM
     Dosage: UNK (  DOSE CHANGES WEEKLY)
  7. ALBUTEROL EXTENDED-RELEASE TABLETS, USP [Suspect]
     Active Substance: ALBUTEROL
     Indication: CHRONIC OBSTRUCTIVE PULMONARY DISEASE
  8. VITAMIN E                          /00110501/ [Concomitant]
     Active Substance: TOCOPHEROL
     Dosage: 1000 INTERNATIONAL UNIT, QD
  9. ALBUTEROL EXTENDED-RELEASE TABLETS, USP [Suspect]
     Active Substance: ALBUTEROL
     Indication: ASTHMA
     Dosage: 4 MILLIGRAM
     Route: 048
     Dates: start: 20190705, end: 20190802
  10. VITAMIN B12 [Concomitant]
     Active Substance: CYANOCOBALAMIN
     Dosage: 3000 MILLIGRAM, QD
  11. VITAMIN A                          /00056001/ [Concomitant]
     Active Substance: RETINOL
     Dosage: 8000 INTERNATIONAL UNIT, QD

REACTIONS (3)
  - Blood cholesterol increased [Unknown]
  - Product availability issue [Unknown]
  - Dyspnoea [Not Recovered/Not Resolved]

NARRATIVE: CASE EVENT DATE: 2019
